FAERS Safety Report 14111820 (Version 1)
Quarter: 2017Q4

REPORT INFORMATION
  Report Type: Spontaneous
  Country: FR (occurrence: FR)
  Receive Date: 20171020
  Receipt Date: 20171020
  Transmission Date: 20180321
  Serious: Yes (Other)
  Sender: FDA-Public Use
  Company Number: FR-MERCK KGAA-2030969

PATIENT
  Age: 67 Year
  Sex: Female

DRUGS (8)
  1. ISOPTINE [Concomitant]
     Active Substance: VERAPAMIL HYDROCHLORIDE
  2. NOVOTHYROX [Suspect]
     Active Substance: LEVOTHYROXINE SODIUM
     Indication: PRODUCT USED FOR UNKNOWN INDICATION
     Dates: start: 201704
  3. LANTUS [Concomitant]
     Active Substance: INSULIN GLARGINE
  4. JANUVIA [Concomitant]
     Active Substance: SITAGLIPTIN PHOSPHATE
  5. INSULIN [Concomitant]
     Active Substance: INSULIN NOS
  6. NOVOTHYROX [Suspect]
     Active Substance: LEVOTHYROXINE SODIUM
     Dates: start: 201707
  7. BI-PROFENID [Concomitant]
     Active Substance: KETOPROFEN
  8. THIOCOLCHICOSIDE [Concomitant]
     Active Substance: THIOCOLCHICOSIDE

REACTIONS (13)
  - Dyspnoea [None]
  - Dizziness [None]
  - Vision blurred [None]
  - Fall [None]
  - Nausea [None]
  - Pain in extremity [None]
  - Depression [None]
  - Fatigue [None]
  - Palpitations [None]
  - Blindness [None]
  - Insomnia [None]
  - Dysstasia [None]
  - Headache [None]

NARRATIVE: CASE EVENT DATE: 2017
